FAERS Safety Report 25300233 (Version 1)
Quarter: 2025Q2

REPORT INFORMATION
  Report Type: Spontaneous
  Country: FR (occurrence: FR)
  Receive Date: 20250512
  Receipt Date: 20250512
  Transmission Date: 20250717
  Serious: Yes (Other)
  Sender: MYLAN
  Company Number: FR-MYLANLABS-2025M1039627

PATIENT
  Age: 66 Year
  Sex: Male

DRUGS (28)
  1. OXALIPLATIN [Suspect]
     Active Substance: OXALIPLATIN
     Indication: Ductal adenocarcinoma of pancreas
  2. OXALIPLATIN [Suspect]
     Active Substance: OXALIPLATIN
     Indication: Metastases to lung
     Route: 065
  3. OXALIPLATIN [Suspect]
     Active Substance: OXALIPLATIN
     Route: 065
  4. OXALIPLATIN [Suspect]
     Active Substance: OXALIPLATIN
  5. FLUOROURACIL [Suspect]
     Active Substance: FLUOROURACIL
     Indication: Ductal adenocarcinoma of pancreas
  6. FLUOROURACIL [Suspect]
     Active Substance: FLUOROURACIL
     Indication: Metastases to lung
  7. FLUOROURACIL [Suspect]
     Active Substance: FLUOROURACIL
     Route: 065
  8. FLUOROURACIL [Suspect]
     Active Substance: FLUOROURACIL
     Route: 065
  9. FLUOROURACIL [Suspect]
     Active Substance: FLUOROURACIL
  10. FLUOROURACIL [Suspect]
     Active Substance: FLUOROURACIL
  11. FLUOROURACIL [Suspect]
     Active Substance: FLUOROURACIL
     Route: 065
  12. FLUOROURACIL [Suspect]
     Active Substance: FLUOROURACIL
     Route: 065
  13. IRINOTECAN [Suspect]
     Active Substance: IRINOTECAN
     Indication: Ductal adenocarcinoma of pancreas
  14. IRINOTECAN [Suspect]
     Active Substance: IRINOTECAN
     Indication: Metastases to lung
  15. IRINOTECAN [Suspect]
     Active Substance: IRINOTECAN
     Route: 065
  16. IRINOTECAN [Suspect]
     Active Substance: IRINOTECAN
     Route: 065
  17. IRINOTECAN [Suspect]
     Active Substance: IRINOTECAN
  18. IRINOTECAN [Suspect]
     Active Substance: IRINOTECAN
  19. IRINOTECAN [Suspect]
     Active Substance: IRINOTECAN
     Route: 065
  20. IRINOTECAN [Suspect]
     Active Substance: IRINOTECAN
     Route: 065
  21. LEUCOVORIN [Suspect]
     Active Substance: LEUCOVORIN\LEUCOVORIN CALCIUM
     Indication: Ductal adenocarcinoma of pancreas
  22. LEUCOVORIN [Suspect]
     Active Substance: LEUCOVORIN\LEUCOVORIN CALCIUM
     Indication: Metastases to lung
  23. LEUCOVORIN [Suspect]
     Active Substance: LEUCOVORIN\LEUCOVORIN CALCIUM
     Route: 065
  24. LEUCOVORIN [Suspect]
     Active Substance: LEUCOVORIN\LEUCOVORIN CALCIUM
     Route: 065
  25. LEUCOVORIN [Suspect]
     Active Substance: LEUCOVORIN\LEUCOVORIN CALCIUM
  26. LEUCOVORIN [Suspect]
     Active Substance: LEUCOVORIN\LEUCOVORIN CALCIUM
  27. LEUCOVORIN [Suspect]
     Active Substance: LEUCOVORIN\LEUCOVORIN CALCIUM
     Route: 065
  28. LEUCOVORIN [Suspect]
     Active Substance: LEUCOVORIN\LEUCOVORIN CALCIUM
     Route: 065

REACTIONS (2)
  - Neuropathy peripheral [Unknown]
  - Drug ineffective [Unknown]

NARRATIVE: CASE EVENT DATE: 20211001
